FAERS Safety Report 5885949-5 (Version None)
Quarter: 2008Q3

REPORT INFORMATION
  Report Type: 
  Country: None (occurrence: None)
  Receive Date: 20080917
  Receipt Date: 20080916
  Transmission Date: 20090109
  Serious: Yes (Death, Hospitalization)
  Sender: FDA-Public Use
  Company Number: TH-BAYER-200816085GPV

PATIENT
  Age: 58 Year
  Sex: Female
  Weight: 43 kg

DRUGS (14)
  1. NEXAVAR [Suspect]
     Indication: RENAL CELL CARCINOMA
     Dosage: TOTAL DAILY DOSE: 800 MG  UNIT DOSE: 200 MG
     Route: 048
     Dates: start: 20080114, end: 20080331
  2. PLASIL [Concomitant]
     Indication: NAUSEA
     Route: 048
     Dates: start: 20080307, end: 20080308
  3. BUSCOPAN [Concomitant]
     Indication: ABDOMINAL PAIN
     Route: 048
     Dates: start: 20080307, end: 20080308
  4. BAMOLIN [Concomitant]
     Indication: ABDOMINAL PAIN
     Route: 048
     Dates: start: 20080307, end: 20080308
  5. NORFLOXACIN [Concomitant]
     Indication: DIARRHOEA
     Route: 048
     Dates: start: 20080307, end: 20080313
  6. MYCOSTATIN [Concomitant]
     Indication: STOMATITIS
     Route: 048
     Dates: start: 20080204
  7. SENOKOT [Concomitant]
     Indication: CONSTIPATION
     Route: 048
     Dates: start: 20080128, end: 20080307
  8. KANOLOG (TRIAMCINOLONE ACETONIDE) [Concomitant]
     Indication: STOMATITIS
     Route: 065
     Dates: start: 20080128
  9. ATARAX [Concomitant]
     Indication: RASH
     Route: 048
     Dates: start: 20080128, end: 20080206
  10. TRAMAL [Concomitant]
     Indication: ABDOMINAL PAIN
     Route: 048
     Dates: start: 20080118, end: 20080120
  11. ACETAMINOPHEN [Concomitant]
     Indication: BONE PAIN
     Route: 048
     Dates: start: 20080121, end: 20080210
  12. MILK OF MAGNESIA [Concomitant]
     Indication: CONSTIPATION
     Route: 048
     Dates: start: 20080121, end: 20080122
  13. SYRUP MORPHINE [Concomitant]
     Indication: BONE PAIN
     Route: 048
     Dates: start: 20071213
  14. MORPHINE [Concomitant]
     Indication: BONE PAIN
     Route: 048
     Dates: start: 20080121

REACTIONS (4)
  - DIARRHOEA [None]
  - FATIGUE [None]
  - MELAENA [None]
  - RENAL CELL CARCINOMA [None]
